FAERS Safety Report 5808298-X (Version None)
Quarter: 2008Q3

REPORT INFORMATION
  Report Type: 
  Country: None (occurrence: None)
  Receive Date: 20080709
  Receipt Date: 20080701
  Transmission Date: 20090109
  Serious: Yes (Other)
  Sender: FDA-Public Use
  Company Number: 028620

PATIENT
  Sex: Female
  Weight: 49.9 kg

DRUGS (3)
  1. FLUDROCORTISONE ACETATE [Suspect]
     Indication: HIP FRACTURE
     Dosage: 2 TABLET EVERY MORNING, ORAL; 1 TABLET,QD,ORAL
     Route: 048
     Dates: start: 20061001, end: 20080601
  2. FLUDROCORTISONE ACETATE [Suspect]
     Indication: WRIST FRACTURE
     Dosage: 2 TABLET EVERY MORNING, ORAL; 1 TABLET,QD,ORAL
     Route: 048
     Dates: start: 20061001, end: 20080601
  3. TRENTAL [Concomitant]

REACTIONS (5)
  - BREAST CANCER IN SITU [None]
  - MALIGNANT NEOPLASM PROGRESSION [None]
  - METASTASES TO LYMPH NODES [None]
  - PAIN [None]
  - UNEVALUABLE EVENT [None]
